FAERS Safety Report 9647710 (Version 1)
Quarter: 2013Q4

REPORT INFORMATION
  Report Type: Spontaneous
  Country: US (occurrence: None)
  Receive Date: 20131024
  Receipt Date: 20131024
  Transmission Date: 20140711
  Serious: Yes (Disabling)
  Sender: FDA-Public Use
  Company Number: None

PATIENT
  Age: 75 Year
  Sex: Male
  Weight: 65.77 kg

DRUGS (1)
  1. LISTERINE TOTAL CARE [Suspect]
     Indication: DENTAL CARE
     Route: 048

REACTIONS (2)
  - Ageusia [None]
  - Aphthous stomatitis [None]
